FAERS Safety Report 8206201-9 (Version None)
Quarter: 2012Q1

REPORT INFORMATION
  Report Type: 
  Country: None (occurrence: None)
  Receive Date: 20120313
  Receipt Date: 20120305
  Transmission Date: 20120608
  Serious: Yes (Hospitalization, Other)
  Sender: FDA-Public Use
  Company Number: PHHY2011CA46065

PATIENT
  Sex: Female

DRUGS (3)
  1. ZOLEDRONOC ACID [Suspect]
     Indication: OSTEOPOROSIS
     Dosage: UNK
     Route: 042
     Dates: start: 20090722
  2. ZOLEDRONOC ACID [Suspect]
     Dosage: UNK
     Route: 042
     Dates: start: 20100816
  3. ZOLEDRONOC ACID [Suspect]
     Dosage: UNK
     Route: 042
     Dates: start: 20110914

REACTIONS (7)
  - FALL [None]
  - MYALGIA [None]
  - GENERAL PHYSICAL HEALTH DETERIORATION [None]
  - HEAD INJURY [None]
  - FRACTURE [None]
  - JOINT INJURY [None]
  - CONTUSION [None]
